FAERS Safety Report 7551771-7 (Version None)
Quarter: 2011Q2

REPORT INFORMATION
  Report Type: 
  Country: None (occurrence: None)
  Receive Date: 20110616
  Receipt Date: 20110610
  Transmission Date: 20111010
  Serious: Yes (Death)
  Sender: FDA-Public Use
  Company Number: B0711743A

PATIENT
  Sex: Male
  Weight: 54 kg

DRUGS (15)
  1. AMIKACIN SULFATE [Concomitant]
     Dosage: 400MG PER DAY
     Route: 042
     Dates: end: 20050909
  2. DEPAS [Concomitant]
     Route: 048
     Dates: end: 20050912
  3. VORICONAZOLE [Suspect]
  4. MEROPENEM [Concomitant]
     Dosage: .5G PER DAY
     Route: 042
     Dates: end: 20050910
  5. ZOVIRAX [Concomitant]
     Dosage: 1000MG PER DAY
     Route: 048
     Dates: end: 20050908
  6. NEO-MINOPHAGEN-C [Concomitant]
     Dosage: 40ML PER DAY
     Route: 042
     Dates: end: 20050906
  7. FAMOTIDINE [Concomitant]
     Dosage: 40MG PER DAY
     Route: 048
     Dates: start: 20050906, end: 20050908
  8. TARGOCID [Concomitant]
     Dosage: 400MG PER DAY
     Route: 042
     Dates: end: 20050910
  9. URSO 250 [Concomitant]
     Dosage: 600MG PER DAY
     Route: 048
     Dates: end: 20050908
  10. ALKERAN [Suspect]
     Indication: ALLOGENIC BONE MARROW TRANSPLANTATION THERAPY
     Dosage: 110MG PER DAY
     Route: 042
     Dates: start: 20050906, end: 20050907
  11. FUNGUARD [Suspect]
     Dosage: 300MG PER DAY
     Route: 042
     Dates: end: 20050929
  12. TACROLIMUS [Concomitant]
     Indication: IMMUNOSUPPRESSION
     Route: 065
     Dates: start: 20050908, end: 20050921
  13. FLUDARA [Suspect]
     Indication: ALLOGENIC BONE MARROW TRANSPLANTATION THERAPY
     Dosage: 40MG PER DAY
     Route: 042
     Dates: start: 20050901, end: 20050905
  14. RAMELTEON [Concomitant]
     Dosage: 1IUAX PER DAY
     Route: 042
     Dates: end: 20050907
  15. ROHYPNOL [Concomitant]
     Dosage: 1MG PER DAY
     Route: 048
     Dates: end: 20050908

REACTIONS (1)
  - HEPATIC VEIN OCCLUSION [None]
